FAERS Safety Report 7023751-1 (Version None)
Quarter: 2010Q4

REPORT INFORMATION
  Report Type: 
  Country: None (occurrence: None)
  Receive Date: 20101001
  Receipt Date: 20100923
  Transmission Date: 20110411
  Serious: Yes (Other)
  Sender: FDA-Public Use
  Company Number: US-BAYER-201034821NA

PATIENT
  Age: 27 Year
  Sex: Female

DRUGS (2)
  1. MIRENA [Suspect]
     Indication: PRODUCT USED FOR UNKNOWN INDICATION
     Dosage: CONTINUOUS ADMINISTRATION
     Route: 015
     Dates: start: 20100721, end: 20100909
  2. MIRENA [Suspect]
     Dosage: CONTINUOUS ADMINISTRATION
     Route: 015
     Dates: start: 20100909

REACTIONS (2)
  - ABDOMINAL PAIN [None]
  - DEVICE DISLOCATION [None]
